FAERS Safety Report 18989559 (Version 3)
Quarter: 2021Q1

REPORT INFORMATION
  Report Type: Spontaneous
  Country: FR (occurrence: FR)
  Receive Date: 20210310
  Receipt Date: 20210312
  Transmission Date: 20210420
  Serious: Yes (Hospitalization, Other)
  Sender: FDA-Public Use
  Company Number: FR-BRISTOL-MYERS SQUIBB COMPANY-BMS-2021-020089

PATIENT
  Sex: Male

DRUGS (3)
  1. COUMADINE [Suspect]
     Active Substance: WARFARIN SODIUM
     Indication: AORTIC VALVE DISEASE
     Dosage: 2 TABLETS OF 5 MG BID
     Route: 065
     Dates: start: 2004
  2. COUMADINE [Suspect]
     Active Substance: WARFARIN SODIUM
     Dosage: 5 TABLETS OF 2 MG BID (2?3 IN THE MORNING AND 2?3 IN THE EVENING WITH AN INTERVAL OF 12 HOURS)
     Route: 065
  3. COUMADINE [Suspect]
     Active Substance: WARFARIN SODIUM
     Dosage: 1.5 TABLETS OF 2 MG BID
     Route: 065

REACTIONS (5)
  - Haematuria [Unknown]
  - Aortic disorder [Unknown]
  - International normalised ratio decreased [Unknown]
  - Aneurysm [Unknown]
  - Road traffic accident [Unknown]
